FAERS Safety Report 6097260-0 (Version None)
Quarter: 2009Q1

REPORT INFORMATION
  Report Type: 
  Country: None (occurrence: None)
  Receive Date: 20090226
  Receipt Date: 20090226
  Transmission Date: 20090719
  Serious: Yes (Life-Threatening)
  Sender: FDA-Public Use
  Company Number: None

PATIENT
  Age: 36 Year
  Sex: Female
  Weight: 80.7403 kg

DRUGS (2)
  1. PRISTIQ [Suspect]
     Indication: HYSTERECTOMY
     Dosage: 50MGS-EXTENDED RELEASE TABLE ONE PILL DAILY PO
     Route: 048
     Dates: start: 20090205, end: 20090205
  2. PRISTIQ [Suspect]
     Indication: PREOPERATIVE CARE
     Dosage: 50MGS-EXTENDED RELEASE TABLE ONE PILL DAILY PO
     Route: 048
     Dates: start: 20090205, end: 20090205

REACTIONS (3)
  - HALLUCINATION, VISUAL [None]
  - NEUROLEPTIC MALIGNANT SYNDROME [None]
  - SEROTONIN SYNDROME [None]
